FAERS Safety Report 7058893-8 (Version None)
Quarter: 2010Q4

REPORT INFORMATION
  Report Type: 
  Country: None (occurrence: None)
  Receive Date: 20101022
  Receipt Date: 20101014
  Transmission Date: 20110411
  Serious: Yes (Death)
  Sender: FDA-Public Use
  Company Number: US-AMGEN LTD.-QUU443525

PATIENT

DRUGS (4)
  1. NPLATE [Suspect]
     Indication: IDIOPATHIC THROMBOCYTOPENIC PURPURA
     Dosage: 4 A?G/KG, UNK
     Dates: start: 20081230, end: 20090714
  2. CORTICOSTEROID NOS [Concomitant]
  3. IMMU-G [Concomitant]
  4. RITUXIMAB [Concomitant]
     Dosage: UNK UNK, UNK
     Dates: start: 20080411, end: 20081206

REACTIONS (1)
  - DISEASE PROGRESSION [None]
